FAERS Safety Report 7262944-5 (Version None)
Quarter: 2011Q1

REPORT INFORMATION
  Report Type: 
  Country: None (occurrence: None)
  Receive Date: 20110130
  Receipt Date: 20101013
  Transmission Date: 20110831
  Serious: No
  Sender: FDA-Public Use
  Company Number: US-ABBOTT-10P-163-0678739-00

PATIENT
  Sex: Female
  Weight: 49.94 kg

DRUGS (10)
  1. SULFASALAZINE [Concomitant]
     Indication: RHEUMATOID ARTHRITIS
     Dosage: UNKNOWN STRENGTH
     Route: 048
  2. PREDNISONE [Concomitant]
     Indication: RHEUMATOID ARTHRITIS
     Route: 048
     Dates: start: 20050101
  3. HUMIRA [Suspect]
     Indication: RHEUMATOID ARTHRITIS
     Route: 058
     Dates: start: 20100914
  4. MISOPROSTOL [Concomitant]
     Indication: PRODUCT USED FOR UNKNOWN INDICATION
     Dosage: TAKES W/DICLOFENAC
     Route: 048
  5. ALENDRONATE SODIUM [Concomitant]
     Indication: OSTEOPOROSIS
     Route: 048
  6. PLAQUENIL [Concomitant]
     Indication: RHEUMATOID ARTHRITIS
     Dosage: UNKNOWN STRENGTH
     Route: 048
  7. DICLOFENAC [Concomitant]
     Indication: ARTHRALGIA
     Route: 048
  8. TRAZODONE [Concomitant]
     Indication: INSOMNIA
     Route: 048
  9. OXYBUTYNIN CHLORIDE [Concomitant]
     Indication: URINARY INCONTINENCE
     Route: 048
  10. LEFLUNOMIDE [Concomitant]
     Indication: RHEUMATOID ARTHRITIS
     Route: 048

REACTIONS (1)
  - INJECTION SITE HAEMATOMA [None]
